FAERS Safety Report 9392837 (Version 1)
Quarter: 2013Q3

REPORT INFORMATION
  Report Type: Spontaneous
  Country: JP (occurrence: JP)
  Receive Date: 20130710
  Receipt Date: 20130710
  Transmission Date: 20140515
  Serious: Yes (Other)
  Sender: FDA-Public Use
  Company Number: PHHY2013JP072686

PATIENT
  Sex: 0

DRUGS (2)
  1. SANDOSTATIN (OCTREOTIDE ACETATE) [Suspect]
     Indication: ENDOCRINE PANCREATIC DISORDER
     Dosage: UNK UKN, UNK
     Route: 058
  2. SANDOSTATIN (OCTREOTIDE ACETATE) [Suspect]
     Indication: OFF LABEL USE

REACTIONS (1)
  - Endocrine pancreatic disorder [Unknown]
